FAERS Safety Report 9863579 (Version 1)
Quarter: 2014Q1

REPORT INFORMATION
  Report Type: Spontaneous
  Country: FR (occurrence: FR)
  Receive Date: 20140203
  Receipt Date: 20140203
  Transmission Date: 20141002
  Serious: Yes (Life-Threatening)
  Sender: FDA-Public Use
  Company Number: FR-ASTRAZENECA-2014SE07032

PATIENT
  Age: 24029 Day
  Sex: Male

DRUGS (8)
  1. XEROQUEL SR [Suspect]
     Indication: MAJOR DEPRESSION
     Route: 048
     Dates: start: 20140106, end: 20140118
  2. GABAPENTINE [Suspect]
     Indication: PREMEDICATION
     Route: 048
     Dates: start: 20140115, end: 20140116
  3. RAMIPRIL [Concomitant]
     Route: 048
  4. METFORMINE [Concomitant]
     Route: 048
  5. SEROPLEX [Concomitant]
     Route: 048
  6. SERESTA [Concomitant]
     Route: 048
  7. THERALENE [Concomitant]
     Route: 048
  8. NOCTAMIDE [Concomitant]
     Route: 048

REACTIONS (1)
  - Status epilepticus [Not Recovered/Not Resolved]
